FAERS Safety Report 7598137-1 (Version None)
Quarter: 2011Q3

REPORT INFORMATION
  Report Type: 
  Country: None (occurrence: None)
  Receive Date: 20110708
  Receipt Date: 20110629
  Transmission Date: 20111222
  Serious: Yes (Hospitalization)
  Sender: FDA-Public Use
  Company Number: BE-ABBOTT-09P-013-0580309-01

PATIENT
  Sex: Female
  Weight: 83 kg

DRUGS (11)
  1. BISOPROLOL FUMARATE [Concomitant]
     Indication: HYPERTENSION
     Dates: start: 19930101
  2. XANAX [Concomitant]
     Indication: INSOMNIA
  3. EFFEXOR [Concomitant]
     Indication: INSOMNIA
     Dates: start: 20020401
  4. ZANTAC [Concomitant]
     Indication: ABDOMINAL DISCOMFORT
  5. ASAFLOW [Concomitant]
     Indication: PAIN
  6. DUOVENT [Concomitant]
     Indication: ASTHMA
  7. SERETIDE DISCUS [Concomitant]
     Indication: ASTHMA
     Dates: start: 20070601
  8. PERINDOPRIL [Concomitant]
     Indication: HYPERTENSION
     Dates: start: 20081101
  9. XANTHIUM [Concomitant]
     Indication: ASTHMA
     Dates: start: 20081101
  10. HUMIRA [Suspect]
     Indication: CROHN'S DISEASE
     Route: 058
     Dates: start: 20080327, end: 20090302
  11. SINGULAIR [Concomitant]
     Indication: ASTHMA
     Dates: start: 20081101

REACTIONS (1)
  - CROHN'S DISEASE [None]
